FAERS Safety Report 5856673-X (Version None)
Quarter: 2008Q3

REPORT INFORMATION
  Report Type: 
  Country: None (occurrence: None)
  Receive Date: 20080825
  Receipt Date: 20080813
  Transmission Date: 20090109
  Serious: Yes (Hospitalization, Other)
  Sender: FDA-Public Use
  Company Number: US-PFIZER INC-2008067892

PATIENT
  Sex: Female
  Weight: 114.54 kg

DRUGS (7)
  1. DETROL LA [Suspect]
     Indication: URGE INCONTINENCE
     Dosage: TEXT:4MG DAILY EVERY DAY TDD:4MG
     Route: 048
     Dates: start: 20080620, end: 20080719
  2. SYNTHROID [Concomitant]
  3. EFFEXOR [Concomitant]
  4. METHOTREXATE [Concomitant]
  5. PREDNISOLONE [Concomitant]
  6. HUMIRA [Concomitant]
  7. HYDROCODONE BITARTRATE [Concomitant]

REACTIONS (1)
  - ABDOMINAL DISCOMFORT [None]
